FAERS Safety Report 11892669 (Version 4)
Quarter: 2016Q1

REPORT INFORMATION
  Report Type: Spontaneous
  Country: GB (occurrence: GB)
  Receive Date: 20160106
  Receipt Date: 20160218
  Transmission Date: 20160526
  Serious: Yes (Death, Hospitalization, Other)
  Sender: FDA-Public Use
  Company Number: GB-GLAXOSMITHKLINE-GB2016000386

PATIENT
  Age: 73 Year
  Sex: Female

DRUGS (31)
  1. CALCIUM [Concomitant]
     Active Substance: CALCIUM
     Dosage: DOSAGE FORM: UNSPECIFIED
     Route: 065
  2. SOFOSBUVIR [Suspect]
     Active Substance: SOFOSBUVIR
     Indication: HEPATOCELLULAR CARCINOMA
     Dosage: 400 MG, UNK
     Route: 048
     Dates: start: 20140906
  3. ATORVASTATIN [Suspect]
     Active Substance: ATORVASTATIN
     Indication: PRODUCT USED FOR UNKNOWN INDICATION
     Dosage: 10 MG, UNK
     Route: 065
  4. AMLODIPIN [Suspect]
     Active Substance: AMLODIPINE BESYLATE
     Indication: PRODUCT USED FOR UNKNOWN INDICATION
     Dosage: 5 DF, UNK
     Route: 065
  5. FEMARA [Suspect]
     Active Substance: LETROZOLE
     Indication: PRODUCT USED FOR UNKNOWN INDICATION
     Dosage: 2.5 MG, UNK
     Route: 065
  6. LIPITOR [Suspect]
     Active Substance: ATORVASTATIN CALCIUM
     Indication: PRODUCT USED FOR UNKNOWN INDICATION
     Dosage: DOSAGE FORM: UNSPECIFIED
     Route: 065
  7. ZYRTEC [Suspect]
     Active Substance: CETIRIZINE HYDROCHLORIDE
     Dosage: DOSAGE FORM: UNKNOWN
     Route: 065
  8. CALCIUM [Concomitant]
     Active Substance: CALCIUM
     Dosage: DOSAGE FORM: UNSPECIFIED
     Route: 065
  9. SOFOSBUVIR [Suspect]
     Active Substance: SOFOSBUVIR
     Indication: HEPATITIS C
  10. DACLATASVIR. [Suspect]
     Active Substance: DACLATASVIR
     Indication: HEPATOCELLULAR CARCINOMA
     Dosage: DOSAGE FORM: UNSPECIFIED
     Route: 065
     Dates: start: 20141016, end: 201412
  11. CALCIUM [Concomitant]
     Active Substance: CALCIUM
     Dosage: DOSAGE FORM: UNSPECIFIED
     Route: 065
  12. SIMEPREVIR [Suspect]
     Active Substance: SIMEPREVIR
     Indication: HEPATOCELLULAR CARCINOMA
  13. CALCIUM [Concomitant]
     Active Substance: CALCIUM
     Dosage: DOSAGE FORM: UNSPECIFIED
     Route: 065
  14. CALCIUM [Concomitant]
     Active Substance: CALCIUM
     Dosage: DOSAGE FORM: UNSPECIFIED
     Route: 065
  15. DACLATASVIR. [Suspect]
     Active Substance: DACLATASVIR
     Indication: HEPATITIS C
  16. LIPITOR [Suspect]
     Active Substance: ATORVASTATIN CALCIUM
     Dosage: DOSAGE FORM: UNSPECIFIED
     Route: 065
  17. LOPRESSOR [Suspect]
     Active Substance: METOPROLOL TARTRATE
     Indication: PRODUCT USED FOR UNKNOWN INDICATION
     Dosage: DOSAGE FORM: UNSPECIFIED, 50
     Route: 065
  18. SENNA [Suspect]
     Active Substance: SENNA LEAF\SENNOSIDES\SENNOSIDES A AND B
     Indication: PRODUCT USED FOR UNKNOWN INDICATION
     Dosage: DOSAGE FORM: UNSPECIFIED
     Route: 065
  19. CALCIUM [Concomitant]
     Active Substance: CALCIUM
     Dosage: DOSAGE FORM: UNSPECIFIED
     Route: 065
  20. CALCIUM [Concomitant]
     Active Substance: CALCIUM
     Dosage: DOSAGE FORM: UNSPECIFIED
     Route: 065
  21. LOPRESSOR [Suspect]
     Active Substance: METOPROLOL TARTRATE
     Dosage: DOSAGE FORM: UNSPECIFIED, 50
     Route: 065
  22. ZANTAC [Suspect]
     Active Substance: RANITIDINE HYDROCHLORIDE
     Dosage: DOSAGE FORM: UNSPECIFIED
     Route: 065
  23. ZYRTEC [Suspect]
     Active Substance: CETIRIZINE HYDROCHLORIDE
     Indication: PRODUCT USED FOR UNKNOWN INDICATION
     Dosage: DOSAGE FORM: UNSPECIFIED
     Route: 065
  24. CALCIUM [Concomitant]
     Active Substance: CALCIUM
     Dosage: DOSAGE FORM: UNSPECIFIED
     Route: 065
  25. CALCIUM [Concomitant]
     Active Substance: CALCIUM
     Dosage: DOSAGE FORM: UNSPECIFIED
     Route: 065
  26. CALCIUM [Concomitant]
     Active Substance: CALCIUM
     Dosage: DOSAGE FORM: UNSPECIFIED
     Route: 065
  27. FEMARA [Suspect]
     Active Substance: LETROZOLE
     Dosage: DOSAGE FORM: UNSPECIFIED
     Route: 065
  28. SIMEPREVIR [Suspect]
     Active Substance: SIMEPREVIR
     Indication: HEPATITIS C
     Dosage: 150 MG, UNK
     Route: 048
     Dates: start: 20140906
  29. ZANTAC [Suspect]
     Active Substance: RANITIDINE HYDROCHLORIDE
     Indication: PRODUCT USED FOR UNKNOWN INDICATION
     Dosage: DOSAGE FORM: UNSPECIFIED
     Route: 065
  30. ZESTRIL [Suspect]
     Active Substance: LISINOPRIL
     Indication: PRODUCT USED FOR UNKNOWN INDICATION
     Dosage: DOSAGE FORM: UNSPECIFIED
     Route: 065
  31. CALCIUM [Concomitant]
     Active Substance: CALCIUM
     Indication: PRODUCT USED FOR UNKNOWN INDICATION
     Dosage: DOSAGE FORM: UNSPECIFIED
     Route: 065

REACTIONS (3)
  - Acute kidney injury [Fatal]
  - Renal impairment [Unknown]
  - General physical health deterioration [Unknown]
